FAERS Safety Report 8805133 (Version 1)
Quarter: 2012Q4

REPORT INFORMATION
  Report Type: 
  Country: US (occurrence: US)
  Receive Date: 20120924
  Receipt Date: 20120924
  Transmission Date: 20130627
  Serious: No
  Sender: FDA-Public Use
  Company Number: US-ALLERGAN-1208562US

PATIENT
  Age: 91 Year
  Sex: Female

DRUGS (2)
  1. LUMIGAN� 0.01% [Suspect]
     Indication: INCREASED INTRAOCULAR PRESSURE
     Dosage: 2 Gtt, qd
     Route: 047
     Dates: start: 2008
  2. AZOPT [Suspect]
     Indication: GLAUCOMA
     Dosage: 2 Gtt, bid
     Dates: start: 2008

REACTIONS (2)
  - Macular degeneration [Unknown]
  - Madarosis [Unknown]
